FAERS Safety Report 8976659 (Version 1)
Quarter: 2012Q4

REPORT INFORMATION
  Report Type: 
  Country: US (occurrence: US)
  Receive Date: 20121220
  Receipt Date: 20121220
  Transmission Date: 20130627
  Serious: Yes (Hospitalization)
  Sender: FDA-Public Use
  Company Number: US-MPIJNJ-2012-08994

PATIENT
  Age: 67 Year

DRUGS (2)
  1. VELCADE [Suspect]
     Indication: MULTIPLE MYELOMA
  2. DEXAMETHASONE [Suspect]
     Indication: MULTIPLE MYELOMA

REACTIONS (7)
  - Coronary artery disease [Unknown]
  - Mental status changes [Unknown]
  - Asthenia [Unknown]
  - Dizziness [Unknown]
  - Chills [Unknown]
  - Anaemia [Unknown]
  - Thrombocytopenia [Unknown]
